FAERS Safety Report 5711799-6 (Version None)
Quarter: 2008Q2

REPORT INFORMATION
  Report Type: 
  Country: None (occurrence: None)
  Receive Date: 20080421
  Receipt Date: 20080409
  Transmission Date: 20081010
  Serious: Yes (Other)
  Sender: FDA-Public Use
  Company Number: GB-PFIZER INC-2008031873

PATIENT
  Age: 23 Year
  Sex: Female
  Weight: 70 kg

DRUGS (3)
  1. CHAMPIX [Suspect]
     Indication: SMOKING CESSATION THERAPY
     Route: 048
     Dates: start: 20080304, end: 20080310
  2. IMPLANON [Concomitant]
  3. MEDROXYPROGESTERONE [Concomitant]
     Indication: VAGINAL HAEMORRHAGE

REACTIONS (5)
  - ABDOMINAL PAIN [None]
  - FLATULENCE [None]
  - NAUSEA [None]
  - PHOTOPSIA [None]
  - RECTAL HAEMORRHAGE [None]
